FAERS Safety Report 7494349-6 (Version None)
Quarter: 2011Q2

REPORT INFORMATION
  Report Type: 
  Country: None (occurrence: None)
  Receive Date: 20110520
  Receipt Date: 20110512
  Transmission Date: 20111010
  Serious: Yes (Other)
  Sender: FDA-Public Use
  Company Number: US-MERCK-1105USA02947

PATIENT
  Age: 47 Year
  Sex: Male

DRUGS (2)
  1. AMPHOTERICIN B [Suspect]
     Indication: ASPERGILLOSIS
     Route: 042
  2. CANCIDAS [Suspect]
     Indication: ASPERGILLOSIS
     Route: 065

REACTIONS (3)
  - CEREBELLAR INFARCTION [None]
  - MYCOTIC ANEURYSM [None]
  - DRUG INEFFECTIVE [None]
